FAERS Safety Report 22309732 (Version 1)
Quarter: 2023Q2

REPORT INFORMATION
  Report Type: Report from Study
  Country: NL (occurrence: NL)
  Receive Date: 20230511
  Receipt Date: 20230511
  Transmission Date: 20230722
  Serious: Yes (Other)
  Sender: FDA-Public Use
  Company Number: NL-SUN PHARMACEUTICAL INDUSTRIES LTD-2023R1-387871

PATIENT
  Age: 50 Year
  Sex: Female

DRUGS (9)
  1. AMOXICILLIN [Suspect]
     Active Substance: AMOXICILLIN
     Indication: Netherton^s syndrome
     Dosage: UNK
     Route: 065
  2. FEXOFENADINE [Suspect]
     Active Substance: FEXOFENADINE HYDROCHLORIDE
     Indication: Netherton^s syndrome
     Dosage: UNK
     Route: 065
  3. ERYTHROMYCIN [Suspect]
     Active Substance: ERYTHROMYCIN
     Indication: Netherton^s syndrome
     Dosage: UNK
     Route: 065
  4. FLUCLOXACILLIN [Suspect]
     Active Substance: FLUCLOXACILLIN
     Indication: Netherton^s syndrome
     Dosage: UNK
     Route: 065
  5. DESLORATADINE [Suspect]
     Active Substance: DESLORATADINE
     Indication: Netherton^s syndrome
     Dosage: UNK
     Route: 065
  6. DIMETHINDENE [Suspect]
     Active Substance: DIMETHINDENE
     Indication: Netherton^s syndrome
     Dosage: UNK
     Route: 065
  7. EMOLLIENTS [Suspect]
     Active Substance: EMOLLIENTS
     Indication: Netherton^s syndrome
     Dosage: UNK
     Route: 065
  8. HYDROXYZINE [Suspect]
     Active Substance: HYDROXYZINE HYDROCHLORIDE
     Indication: Netherton^s syndrome
     Dosage: UNK
     Route: 065
  9. ZINCOXIDE [Suspect]
     Active Substance: ZINC OXIDE
     Indication: Netherton^s syndrome
     Dosage: UNK
     Route: 065

REACTIONS (1)
  - Therapy non-responder [Unknown]
